FAERS Safety Report 8819473 (Version 2)
Quarter: 2013Q2

REPORT INFORMATION
  Report Type: Spontaneous
  Country: US (occurrence: US)
  Receive Date: 20120930
  Receipt Date: 20130618
  Transmission Date: 20140414
  Serious: Yes (Hospitalization, Other)
  Sender: FDA-Public Use
  Company Number: US-BRISTOL-MYERS SQUIBB COMPANY-16981680

PATIENT
  Age: 76 Year
  Sex: Female
  Weight: 39.91 kg

DRUGS (2)
  1. COUMADIN TABS [Suspect]
     Indication: AORTIC VALVE REPLACEMENT
     Dosage: ALS RECEIVED 3MG,4MG,2MG,1MG
     Route: 048
     Dates: start: 1995
  2. CRESTOR [Concomitant]

REACTIONS (5)
  - Mitral valve replacement [Unknown]
  - Cardiac pacemaker insertion [Unknown]
  - Weight decreased [Unknown]
  - Body height decreased [Unknown]
  - International normalised ratio increased [Unknown]
